FAERS Safety Report 7989280-3 (Version None)
Quarter: 2011Q4

REPORT INFORMATION
  Report Type: 
  Country: None (occurrence: None)
  Receive Date: 20111007
  Receipt Date: 20110614
  Transmission Date: 20120403
  Serious: No
  Sender: FDA-Public Use
  Company Number: 2011HGS-002344

PATIENT
  Age: 49 Year
  Sex: Female
  Weight: 62.1428 kg

DRUGS (5)
  1. MELOXICAM [Concomitant]
  2. BENLYSTA [Suspect]
     Dosage: 10 MG/KG, 1 IN 14 D, INTRAVENOUS DRIP
     Route: 041
     Dates: start: 20110509
  3. OMEPRAZOLE [Concomitant]
  4. TRAMADOL HCL [Concomitant]
  5. LYRICA [Concomitant]

REACTIONS (3)
  - ABDOMINAL PAIN [None]
  - INCREASED APPETITE [None]
  - ABDOMINAL DISCOMFORT [None]
